FAERS Safety Report 23130979 (Version 3)
Quarter: 2023Q4

REPORT INFORMATION
  Report Type: Report from Study
  Country: US (occurrence: US)
  Receive Date: 20231031
  Receipt Date: 20231130
  Transmission Date: 20240110
  Serious: Yes (Other)
  Sender: FDA-Public Use
  Company Number: US-TAKEDA-2023TUS103781

PATIENT
  Age: 56 Year
  Sex: Female

DRUGS (1)
  1. BRIGATINIB [Suspect]
     Active Substance: BRIGATINIB
     Indication: Lung neoplasm malignant
     Dosage: 180 MILLIGRAM, QD
     Route: 048
     Dates: start: 20231017

REACTIONS (19)
  - Spinal operation [Unknown]
  - Lethargy [Recovered/Resolved]
  - Somnolence [Unknown]
  - Neck pain [Unknown]
  - Depressed mood [Unknown]
  - Illness [Unknown]
  - Weight decreased [Unknown]
  - Feeling abnormal [Unknown]
  - Hypophagia [Unknown]
  - Skin reaction [Unknown]
  - Tinnitus [Unknown]
  - Back pain [Unknown]
  - Headache [Unknown]
  - Taste disorder [Unknown]
  - Fatigue [Unknown]
  - Decreased appetite [Unknown]
  - Nausea [Unknown]
  - Vomiting [Unknown]
  - Visual impairment [Unknown]

NARRATIVE: CASE EVENT DATE: 20231101
